FAERS Safety Report 9820161 (Version 1)
Quarter: 2013Q4

REPORT INFORMATION
  Report Type: Spontaneous
  Country: US (occurrence: None)
  Receive Date: 20131021
  Receipt Date: 20131021
  Transmission Date: 20140711
  Serious: Yes (Other)
  Sender: FDA-Public Use
  Company Number: 2013SCPR005502

PATIENT
  Age: 87 Year
  Sex: Male

DRUGS (1)
  1. FENTANYL [Suspect]
     Indication: BACK PAIN
     Dosage: 1 PATCH, EVERY 72 HOURS, TRANSDERMAL?
     Route: 062
     Dates: start: 20130116, end: 20130117

REACTIONS (2)
  - Dyspnoea [None]
  - Dizziness [None]
